FAERS Safety Report 24001719 (Version 2)
Quarter: 2024Q3

REPORT INFORMATION
  Report Type: Spontaneous
  Country: MX (occurrence: MX)
  Receive Date: 20240621
  Receipt Date: 20240701
  Transmission Date: 20241017
  Serious: Yes (Death, Other)
  Sender: GENMAB
  Company Number: MX-GENMAB-2024-02170

PATIENT
  Sex: Male
  Weight: 64 kg

DRUGS (10)
  1. EPCORITAMAB [Suspect]
     Active Substance: EPCORITAMAB
     Indication: Diffuse large B-cell lymphoma
     Dosage: 0.16 MG LAST ADMIN DATE -JUN 2024 0.16 MG
     Route: 058
     Dates: start: 20240607, end: 202406
  2. DOSFOL [Concomitant]
     Indication: Product used for unknown indication
     Dosage: UNK
  3. ONDANSETRON HYDROCHLORIDE [Concomitant]
     Active Substance: ONDANSETRON HYDROCHLORIDE
     Indication: Product used for unknown indication
     Dosage: UNK
  4. IBAX [OMEPRAZOLE] [Concomitant]
     Indication: Product used for unknown indication
     Dosage: UNK
  5. PRIBAC [Concomitant]
     Indication: Product used for unknown indication
     Dosage: UNK
  6. ALIN [DEXAMETHASONE] [Concomitant]
     Indication: Product used for unknown indication
     Dosage: UNK
  7. ACETAMINOPHEN [Concomitant]
     Active Substance: ACETAMINOPHEN
     Indication: Product used for unknown indication
     Dosage: PRN
  8. NYSTATIN [Concomitant]
     Active Substance: NYSTATIN
     Indication: Product used for unknown indication
     Dosage: SUSPENSION
  9. CILASTATIN SODIUM\IMIPENEM [Concomitant]
     Active Substance: CILASTATIN SODIUM\IMIPENEM
     Indication: Product used for unknown indication
     Dosage: UNK
  10. ALBUMIN HUMAN [Concomitant]
     Active Substance: ALBUMIN HUMAN
     Indication: Product used for unknown indication
     Dosage: 20%

REACTIONS (9)
  - Acute respiratory failure [Fatal]
  - Diffuse large B-cell lymphoma [Fatal]
  - Disseminated intravascular coagulation [Fatal]
  - Cholestasis [Fatal]
  - Thrombocytopenia [Fatal]
  - Anaemia [Unknown]
  - Tumour compression [Unknown]
  - Blood bilirubin increased [Unknown]
  - Dilatation intrahepatic duct acquired [Unknown]

NARRATIVE: CASE EVENT DATE: 20240101
